FAERS Safety Report 16887233 (Version 1)
Quarter: 2019Q4

REPORT INFORMATION
  Report Type: Spontaneous
  Country: CZ (occurrence: CZ)
  Receive Date: 20191004
  Receipt Date: 20191004
  Transmission Date: 20200122
  Serious: Yes (Life-Threatening, Hospitalization, Other)
  Sender: FDA-Public Use
  Company Number: CZ-BAUSCH-BL-2019-055332

PATIENT
  Age: 35 Year
  Sex: Female

DRUGS (2)
  1. TOUJEO [Concomitant]
     Active Substance: INSULIN GLARGINE
     Indication: DIABETES MELLITUS
     Dosage: AT 22 HOURS
     Route: 058
  2. METFORMIN HYDROCHLORIDE. [Suspect]
     Active Substance: METFORMIN HYDROCHLORIDE
     Indication: DIABETES MELLITUS
     Route: 048

REACTIONS (7)
  - Encephalopathy [Recovered/Resolved]
  - Mitochondrial myopathy [Recovered/Resolved]
  - Lactic acidosis [Recovered/Resolved]
  - Cerebrovascular accident [Recovered/Resolved]
  - Generalised tonic-clonic seizure [Recovered/Resolved]
  - Loss of consciousness [Recovered/Resolved]
  - Hyperglycaemia [Recovered/Resolved]
